FAERS Safety Report 23670965 (Version 1)
Quarter: 2024Q1

REPORT INFORMATION
  Report Type: Spontaneous
  Country: US (occurrence: None)
  Receive Date: 20240326
  Receipt Date: 20240326
  Transmission Date: 20240410
  Serious: No
  Sender: FDA-Public Use
  Company Number: US-ROCHE-3423770

PATIENT
  Age: 30 Year
  Sex: Male

DRUGS (7)
  1. EVRYSDI [Suspect]
     Active Substance: RISDIPLAM
     Indication: Spinal muscular atrophy
     Route: 048
     Dates: start: 20200305, end: 20230817
  2. SODIUM [Concomitant]
     Active Substance: SODIUM
  3. IBUPROFEN [Concomitant]
     Active Substance: IBUPROFEN
     Route: 048
  4. MINERAL OIL [Concomitant]
     Active Substance: MINERAL OIL
     Route: 048
  5. LINZESS [Concomitant]
     Active Substance: LINACLOTIDE
     Route: 048
  6. ZYRTEC [Concomitant]
     Active Substance: CETIRIZINE HYDROCHLORIDE
     Route: 048
  7. ALBUTEROL [Concomitant]
     Active Substance: ALBUTEROL

REACTIONS (4)
  - Nausea [Recovered/Resolved]
  - Vomiting [Recovered/Resolved]
  - Abdominal pain [Recovered/Resolved]
  - Diarrhoea [Recovered/Resolved]

NARRATIVE: CASE EVENT DATE: 20201103
